FAERS Safety Report 5910335-9 (Version None)
Quarter: 2008Q4

REPORT INFORMATION
  Report Type: 
  Country: None (occurrence: None)
  Receive Date: 20081007
  Receipt Date: 20080912
  Transmission Date: 20090506
  Serious: No
  Sender: FDA-Public Use
  Company Number: US-ASTRAZENECA-2007UW27544

PATIENT
  Age: 70 Year
  Sex: Female

DRUGS (3)
  1. ARIMIDEX [Suspect]
     Indication: BREAST CANCER
     Route: 048
  2. ATENOLOL [Concomitant]
  3. FOSAMAX [Concomitant]

REACTIONS (7)
  - ANXIETY [None]
  - ASTHENIA [None]
  - HAIR TEXTURE ABNORMAL [None]
  - HEPATIC ENZYME INCREASED [None]
  - HOT FLUSH [None]
  - PAIN [None]
  - RESORPTION BONE INCREASED [None]
